FAERS Safety Report 5366961-1 (Version None)
Quarter: 2007Q2

REPORT INFORMATION
  Report Type: 
  Country: None (occurrence: None)
  Receive Date: 20070619
  Receipt Date: 20070608
  Transmission Date: 20071010
  Serious: Yes (Hospitalization)
  Sender: FDA-Public Use
  Company Number: TRP_0694_2006

PATIENT
  Sex: Male
  Weight: 83.4619 kg

DRUGS (7)
  1. RIBASPHERE/RIBAVIRIN/THREE RIVERS PHARMA (THREE RIVERS PHARMACEUTICALS [Suspect]
     Indication: HEPATITIS C
     Dosage: (1200 MG QD ORAL)
     Route: 048
     Dates: start: 20050711, end: 20050802
  2. RIBASPHERE [Suspect]
     Indication: HEPATITIS C
     Dosage: (600 MG QD ORAL)
     Route: 048
     Dates: start: 20050803, end: 20060105
  3. RIBASPHERE [Suspect]
     Indication: HEPATITIS C
     Dosage: (800 MG QD ORAL)
     Route: 048
     Dates: start: 20060106, end: 20060107
  4. INFERGEN [Suspect]
     Indication: HEPATITIS C
     Dosage: (9 UG QD SUBCUTANEOUS)
     Route: 058
     Dates: start: 20050711, end: 20060108
  5. LEXAPRO [Concomitant]
  6. GEODON /01487002/ [Concomitant]
  7. PAXIL [Concomitant]

REACTIONS (18)
  - ALANINE AMINOTRANSFERASE INCREASED [None]
  - APATHY [None]
  - ASCITES [None]
  - ASPARTATE AMINOTRANSFERASE INCREASED [None]
  - CHOLELITHIASIS [None]
  - DECREASED APPETITE [None]
  - DEPRESSION [None]
  - DISEASE RECURRENCE [None]
  - DUODENAL ULCER [None]
  - GASTRIC ULCER [None]
  - GASTRITIS [None]
  - GASTROENTERITIS [None]
  - HAEMATOCRIT DECREASED [None]
  - HAEMOGLOBIN DECREASED [None]
  - INSOMNIA [None]
  - LYMPHOCYTE COUNT DECREASED [None]
  - PLATELET COUNT DECREASED [None]
  - WEIGHT DECREASED [None]
